FAERS Safety Report 11776792 (Version 1)
Quarter: 2015Q4

REPORT INFORMATION
  Report Type: Spontaneous
  Country: US (occurrence: US)
  Receive Date: 20151125
  Receipt Date: 20151125
  Transmission Date: 20160304
  Serious: No
  Sender: FDA-Public Use
  Company Number: US-TEVA-533898USA

PATIENT
  Sex: Female

DRUGS (4)
  1. XOPENEX [Suspect]
     Active Substance: LEVALBUTEROL HYDROCHLORIDE
     Route: 055
  2. ADVAIR HFA [Concomitant]
     Active Substance: FLUTICASONE PROPIONATE\SALMETEROL XINAFOATE
  3. PROAIR HFA [Concomitant]
     Active Substance: ALBUTEROL SULFATE
  4. BUDESONIDE. [Suspect]
     Active Substance: BUDESONIDE
     Indication: ALLERGIC BRONCHITIS
     Dosage: 0.5 MG/2 ML
     Route: 055

REACTIONS (2)
  - Wrong technique in product usage process [Unknown]
  - Asthma [Unknown]
